FAERS Safety Report 7426211-9 (Version None)
Quarter: 2011Q2

REPORT INFORMATION
  Report Type: 
  Country: None (occurrence: None)
  Receive Date: 20110420
  Receipt Date: 20110418
  Transmission Date: 20111010
  Serious: Yes (Hospitalization)
  Sender: FDA-Public Use
  Company Number: A0849032A

PATIENT
  Age: 70 Year
  Sex: Female
  Weight: 80.9 kg

DRUGS (2)
  1. ROSIGLITAZONE MALEATE [Suspect]
     Dosage: 4MG TWICE PER DAY
     Route: 048
     Dates: start: 20031201, end: 20060501
  2. AVANDIA [Suspect]
     Indication: DIABETES MELLITUS
     Route: 048

REACTIONS (6)
  - CORONARY ARTERY DISEASE [None]
  - SWELLING [None]
  - ACUTE MYOCARDIAL INFARCTION [None]
  - ACUTE CORONARY SYNDROME [None]
  - MYOCARDIAL INFARCTION [None]
  - WEIGHT INCREASED [None]
